FAERS Safety Report 10347632 (Version 8)
Quarter: 2018Q2

REPORT INFORMATION
  Report Type: Spontaneous
  Country: US (occurrence: US)
  Receive Date: 20140729
  Receipt Date: 20180504
  Transmission Date: 20180711
  Serious: Yes (Death, Hospitalization, Other)
  Sender: FDA-Public Use
  Company Number: US-PFIZER INC-2014208030

PATIENT
  Age: 79 Year
  Sex: Male
  Weight: 83.45 kg

DRUGS (4)
  1. REVATIO [Suspect]
     Active Substance: SILDENAFIL CITRATE
     Indication: LUNG DISORDER
     Dosage: UNK
  2. REVATIO [Suspect]
     Active Substance: SILDENAFIL CITRATE
     Dosage: 20 MG, 3X/DAY
     Route: 048
  3. REVATIO [Suspect]
     Active Substance: SILDENAFIL CITRATE
     Dosage: 20 MG, 3X/DAY
     Route: 048
  4. REVATIO [Suspect]
     Active Substance: SILDENAFIL CITRATE
     Dosage: 20 MG, UNK

REACTIONS (6)
  - Abdominal pain upper [Unknown]
  - Pleural effusion [Unknown]
  - Infection [Fatal]
  - Bacterial infection [Unknown]
  - Myocardial infarction [Fatal]
  - Pneumonia [Unknown]

NARRATIVE: CASE EVENT DATE: 20180407
